FAERS Safety Report 9175720 (Version 1)
Quarter: 2012Q4

REPORT INFORMATION
  Report Type: 
  Country: US (occurrence: US)
  Receive Date: 20120917
  Receipt Date: 20120917
  Transmission Date: 20130627
  Serious: Yes (Other)
  Sender: FDA-Public Use
  Company Number: US-RB-044451-12

PATIENT
  Age: 60 Year
  Sex: Male

DRUGS (1)
  1. SUBOXONE FILM [Suspect]
     Indication: PRODUCT USED FOR UNKNOWN INDICATION
     Dosage: Suboxone film; unknown dosage details
     Route: 065

REACTIONS (9)
  - Underdose [Not Recovered/Not Resolved]
  - Wrong technique in drug usage process [Not Recovered/Not Resolved]
  - Asthenia [Not Recovered/Not Resolved]
  - Depression [Not Recovered/Not Resolved]
  - Impaired work ability [Not Recovered/Not Resolved]
  - Decreased appetite [Not Recovered/Not Resolved]
  - Libido decreased [Not Recovered/Not Resolved]
  - Memory impairment [Not Recovered/Not Resolved]
  - Loss of consciousness [Not Recovered/Not Resolved]
